FAERS Safety Report 6483459-8 (Version None)
Quarter: 2009Q4

REPORT INFORMATION
  Report Type: 
  Country: None (occurrence: None)
  Receive Date: 20091209
  Receipt Date: 20091201
  Transmission Date: 20100525
  Serious: Yes (Other)
  Sender: FDA-Public Use
  Company Number: JP-BAYER-200711460GDS

PATIENT
  Age: 30 Year
  Sex: Female

DRUGS (4)
  1. ASPIRIN [Suspect]
     Indication: ALLERGY TEST
     Route: 048
  2. ASPIRIN [Suspect]
     Route: 048
  3. ASPIRIN [Suspect]
     Route: 048
  4. ETODOLAC [Concomitant]
     Indication: ALLERGY TEST

REACTIONS (5)
  - ANAPHYLACTIC REACTION [None]
  - FOOD ALLERGY [None]
  - HYPOTENSION [None]
  - THROAT TIGHTNESS [None]
  - URTICARIA [None]
